FAERS Safety Report 13025028 (Version 1)
Quarter: 2016Q4

REPORT INFORMATION
  Report Type: Spontaneous
  Country: CA (occurrence: CA)
  Receive Date: 20161213
  Receipt Date: 20161213
  Transmission Date: 20170207
  Serious: Yes (Other)
  Sender: FDA-Public Use
  Company Number: CA-ROCHE-1849538

PATIENT
  Sex: Female

DRUGS (14)
  1. XELJANZ [Concomitant]
     Active Substance: TOFACITINIB CITRATE
     Indication: RHEUMATOID ARTHRITIS
     Route: 048
     Dates: start: 20160530
  2. PANTOPRAZOLE [Concomitant]
     Active Substance: PANTOPRAZOLE SODIUM
     Indication: PRODUCT USED FOR UNKNOWN INDICATION
  3. ATORVASTATIN [Concomitant]
     Active Substance: ATORVASTATIN
     Indication: PRODUCT USED FOR UNKNOWN INDICATION
     Route: 048
  4. METHOTREXATE. [Concomitant]
     Active Substance: METHOTREXATE
     Indication: RHEUMATOID ARTHRITIS
  5. INDOMETHACIN. [Concomitant]
     Active Substance: INDOMETHACIN
     Indication: PRODUCT USED FOR UNKNOWN INDICATION
  6. TYLENOL WITH CODEINE [Suspect]
     Active Substance: ACETAMINOPHEN\CODEINE PHOSPHATE
     Indication: PRODUCT USED FOR UNKNOWN INDICATION
     Route: 065
  7. XELJANZ [Concomitant]
     Active Substance: TOFACITINIB CITRATE
     Route: 048
     Dates: start: 20160530
  8. SULFASALAZINE. [Concomitant]
     Active Substance: SULFASALAZINE
     Indication: RHEUMATOID ARTHRITIS
  9. ESCITALOPRAM [Concomitant]
     Active Substance: ESCITALOPRAM OXALATE
     Indication: PRODUCT USED FOR UNKNOWN INDICATION
  10. NAPROSYN [Suspect]
     Active Substance: NAPROXEN
     Indication: PAIN
     Route: 048
  11. ENBREL [Concomitant]
     Active Substance: ETANERCEPT
     Indication: RHEUMATOID ARTHRITIS
  12. ACTEMRA [Suspect]
     Active Substance: TOCILIZUMAB
     Indication: PRODUCT USED FOR UNKNOWN INDICATION
     Dosage: FOR 7 YEARS
     Route: 065
  13. IMOVANE [Concomitant]
     Active Substance: ZOPICLONE
     Route: 065
  14. IRBESARTAN. [Concomitant]
     Active Substance: IRBESARTAN
     Indication: PRODUCT USED FOR UNKNOWN INDICATION

REACTIONS (11)
  - Nausea [None]
  - Drug ineffective [None]
  - Dizziness [None]
  - Arthralgia [None]
  - Liver injury [Unknown]
  - Arthropathy [None]
  - Feeling abnormal [Unknown]
  - Activities of daily living impaired [Unknown]
  - Malaise [None]
  - Pain [None]
  - Somnolence [Unknown]
